FAERS Safety Report 11839955 (Version 2)
Quarter: 2015Q4

REPORT INFORMATION
  Report Type: Spontaneous
  Country: MY (occurrence: MY)
  Receive Date: 20151216
  Receipt Date: 20151222
  Transmission Date: 20160305
  Serious: Yes (Other)
  Sender: FDA-Public Use
  Company Number: MY-ACTAVIS-2015-27595

PATIENT
  Age: 37 Year
  Sex: Male

DRUGS (2)
  1. AMOXYCILLIN                        /00249601/ [Concomitant]
     Active Substance: AMOXICILLIN
     Indication: PRODUCT USED FOR UNKNOWN INDICATION
     Dosage: UNK
     Route: 065
  2. METOCLOPRAMIDE. [Suspect]
     Active Substance: METOCLOPRAMIDE
     Indication: PRODUCT USED FOR UNKNOWN INDICATION
     Dosage: 30 MG, DAILY
     Route: 048

REACTIONS (1)
  - Facial spasm [Unknown]

NARRATIVE: CASE EVENT DATE: 20140719
